FAERS Safety Report 8258104-1 (Version None)
Quarter: 2012Q2

REPORT INFORMATION
  Report Type: 
  Country: None (occurrence: None)
  Receive Date: 20120404
  Receipt Date: 20120403
  Transmission Date: 20120825
  Serious: Yes (Hospitalization, Other)
  Sender: FDA-Public Use
  Company Number: US-JNJFOC-20091007063

PATIENT
  Sex: Female
  Weight: 61.24 kg

DRUGS (16)
  1. PROGESTERONE [Concomitant]
     Route: 065
  2. LEVAQUIN [Suspect]
     Indication: PNEUMONIA
     Route: 065
     Dates: start: 20080101
  3. DEXAMETHASONE [Suspect]
     Indication: BRONCHITIS
     Route: 065
  4. OXYBUTYNIN CHLORIDE [Concomitant]
     Route: 065
  5. PREDNISONE TAB [Suspect]
     Indication: ILL-DEFINED DISORDER
     Route: 065
  6. FLEXERIL [Concomitant]
     Route: 048
  7. TIZANIDINE HCL [Concomitant]
     Route: 065
     Dates: start: 20090203
  8. NEURONTIN [Concomitant]
     Route: 065
     Dates: start: 20080421
  9. ADVAIR DISKUS 100/50 [Suspect]
     Indication: BRONCHITIS
     Route: 065
  10. STEROIDS NOS [Suspect]
     Indication: ASTHMA
     Route: 048
  11. WELLBUTRIN SR [Concomitant]
     Route: 065
  12. LOMOTIL [Concomitant]
     Route: 048
     Dates: start: 20090112
  13. MACROBID [Concomitant]
     Route: 065
  14. LEVOTHROID [Concomitant]
     Route: 065
  15. NORCO [Concomitant]
     Route: 065
     Dates: start: 20090217
  16. AZITHROMYCIN [Concomitant]
     Route: 065
     Dates: start: 20090112

REACTIONS (6)
  - CERVICAL SPINAL STENOSIS [None]
  - JOINT INJURY [None]
  - INSOMNIA [None]
  - INTERVERTEBRAL DISC DEGENERATION [None]
  - ROTATOR CUFF SYNDROME [None]
  - MUSCULOSKELETAL PAIN [None]
